FAERS Safety Report 15074962 (Version 1)
Quarter: 2018Q2

REPORT INFORMATION
  Report Type: Spontaneous
  Country: US (occurrence: US)
  Receive Date: 20180607
  Receipt Date: 20180607
  Transmission Date: 20180711
  Serious: No
  Sender: FDA-Public Use
  Company Number: None

PATIENT
  Age: 32 Year
  Sex: Female
  Weight: 59.4 kg

DRUGS (5)
  1. ASPIRIN. [Concomitant]
     Active Substance: ASPIRIN
  2. RANEXA [Concomitant]
     Active Substance: RANOLAZINE
  3. DILTIAZEM. [Concomitant]
     Active Substance: DILTIAZEM
  4. FISH OIL [Concomitant]
     Active Substance: FISH OIL
  5. ATORVASTATIN [Suspect]
     Active Substance: ATORVASTATIN
     Indication: CORONARY ARTERY DISEASE
     Dosage: ?          QUANTITY:1 TABLET(S);?
     Route: 048
     Dates: start: 20180206, end: 20180528

REACTIONS (1)
  - Alopecia [None]

NARRATIVE: CASE EVENT DATE: 20180528
